FAERS Safety Report 23784335 (Version 1)
Quarter: 2024Q2

REPORT INFORMATION
  Report Type: Spontaneous
  Country: US (occurrence: US)
  Receive Date: 20240425
  Receipt Date: 20240425
  Transmission Date: 20240716
  Serious: No
  Sender: FDA-Public Use
  Company Number: US-Kiniksa Pharmaceuticals Ltd.-2023KPU001082

PATIENT
  Age: 57 Year
  Sex: Male

DRUGS (8)
  1. ARCALYST [Suspect]
     Active Substance: RILONACEPT
     Indication: Product used for unknown indication
     Route: 058
  2. UNSPECIFIED INGREDIENT [Concomitant]
     Active Substance: UNSPECIFIED INGREDIENT
     Indication: Chest pain
  3. IBUPROFEN [Concomitant]
     Active Substance: IBUPROFEN
     Indication: Chest pain
  4. TORADOL [Concomitant]
     Active Substance: KETOROLAC TROMETHAMINE
     Indication: Chest pain
  5. METHYLPREDNISOLONE [Concomitant]
     Active Substance: METHYLPREDNISOLONE
     Indication: Chest pain
  6. COLCHICINE [Concomitant]
     Active Substance: COLCHICINE
     Indication: Chest pain
  7. GABAPENTIN [Concomitant]
     Active Substance: GABAPENTIN
     Indication: Chest pain
  8. HYDROCORTISONE [Concomitant]
     Active Substance: HYDROCORTISONE
     Indication: Chest pain

REACTIONS (2)
  - Injection site urticaria [Unknown]
  - Injection site rash [Unknown]
